FAERS Safety Report 10244196 (Version 1)
Quarter: 2014Q2

REPORT INFORMATION
  Report Type: Report from Study
  Country: KE (occurrence: KE)
  Receive Date: 20140618
  Receipt Date: 20140618
  Transmission Date: 20141212
  Serious: Yes (Death)
  Sender: FDA-Public Use
  Company Number: KE-009507513-1406KEN007564

PATIENT
  Age: 41 Year
  Sex: Female

DRUGS (19)
  1. RALTEGRAVIR POTASSIUM [Suspect]
     Indication: HIV INFECTION
     Dosage: UNK
     Route: 048
     Dates: start: 20140507, end: 20140607
  2. EFAVIRENZ [Suspect]
     Indication: HIV INFECTION
     Dosage: UNK
     Route: 048
     Dates: start: 20140507, end: 20140607
  3. TENOFOVIR [Suspect]
     Indication: HIV INFECTION
     Dosage: UNK
     Dates: start: 20140507, end: 20140607
  4. EMTRICITABINE [Suspect]
     Indication: HIV INFECTION
     Dosage: UNK
     Dates: start: 20140507, end: 20140607
  5. SEPTRIN [Suspect]
     Dosage: UNK
     Dates: start: 20140422, end: 20140607
  6. RIFAMPIN [Suspect]
     Indication: TUBERCULOSIS
     Dosage: UNK
     Dates: start: 20140507, end: 20140607
  7. ISONIAZID [Suspect]
     Indication: TUBERCULOSIS
     Dosage: UNK
     Route: 048
     Dates: start: 20140507, end: 20140607
  8. ETHAMBUTOL HYDROCHLORIDE [Suspect]
     Indication: TUBERCULOSIS
     Dosage: UNK
     Dates: start: 20140507, end: 20140607
  9. PYRAZINAMIDE [Suspect]
     Indication: TUBERCULOSIS
     Dosage: UNK
     Dates: start: 20140507, end: 20140607
  10. FLUCONAZOLE [Concomitant]
     Dosage: UNK
     Dates: start: 20140507, end: 20140607
  11. PYRIDOXINE [Concomitant]
     Dosage: UNK
     Dates: start: 20140507, end: 20140607
  12. AZITHROMYCIN [Concomitant]
     Dosage: UNK
     Dates: start: 20140505, end: 20140511
  13. ALBENDAZOLE [Concomitant]
     Dosage: UNK
     Dates: start: 20140507, end: 20140507
  14. ACYCLOVIR [Concomitant]
     Dosage: UNK
     Dates: start: 20140519, end: 20140525
  15. AUGMENTIN [Concomitant]
     Dosage: UNK
     Dates: start: 20140526, end: 20140601
  16. ACETAMINOPHEN [Concomitant]
     Dosage: UNK
     Dates: start: 20140526, end: 20140607
  17. NYSTATIN [Concomitant]
     Dosage: UNK
     Dates: start: 20140526, end: 20140601
  18. PENICILLIN G BENZATHINE [Concomitant]
     Dosage: UNK
     Dates: start: 20140519, end: 20140519
  19. CIPROFLOXACIN [Concomitant]
     Dosage: UNK
     Dates: start: 20140519, end: 20140525

REACTIONS (5)
  - Death [Fatal]
  - Extrapulmonary tuberculosis [Fatal]
  - Anaemia [Fatal]
  - Immune reconstitution inflammatory syndrome associated tuberculosis [Fatal]
  - Sepsis [Fatal]
